FAERS Safety Report 6132611-X (Version None)
Quarter: 2009Q1

REPORT INFORMATION
  Report Type: 
  Country: None (occurrence: None)
  Receive Date: 20090324
  Receipt Date: 20081117
  Transmission Date: 20090719
  Serious: Yes (Other)
  Sender: FDA-Public Use
  Company Number: 001#1#2008-00639

PATIENT
  Sex: Male

DRUGS (3)
  1. PROSTAVASIN /00501501/ (PROSTAVASIN) [Suspect]
     Indication: EMBOLISM
     Dosage: (1 VIAL IN 100 ML NACL (10 UNITS) INTRAVENOUS (NOT OTHERWISE SPECIFIED)
     Route: 042
     Dates: start: 20081021, end: 20081104
  2. NOVALGIN /00039501/ [Concomitant]
  3. PLAVIX [Concomitant]

REACTIONS (1)
  - ARTHRALGIA [None]
